FAERS Safety Report 25704917 (Version 1)
Quarter: 2025Q3

REPORT INFORMATION
  Report Type: Spontaneous
  Country: US (occurrence: US)
  Receive Date: 20250820
  Receipt Date: 20250820
  Transmission Date: 20251021
  Serious: Yes (Hospitalization, Other)
  Sender: AUROBINDO
  Company Number: US-AUROBINDO-AUR-APL-2025-042125

PATIENT
  Age: 31 Year
  Sex: Female

DRUGS (5)
  1. TOPIRAMATE [Suspect]
     Active Substance: TOPIRAMATE
     Indication: Migraine prophylaxis
     Route: 065
  2. TOPIRAMATE [Suspect]
     Active Substance: TOPIRAMATE
     Route: 065
  3. PHENTERMINE [Suspect]
     Active Substance: PHENTERMINE
     Indication: Product used for unknown indication
     Route: 065
  4. PHENTERMINE [Suspect]
     Active Substance: PHENTERMINE
     Route: 065
  5. TRAZODONE [Suspect]
     Active Substance: TRAZODONE HYDROCHLORIDE
     Indication: Insomnia
     Route: 065

REACTIONS (6)
  - Post-traumatic stress disorder [Recovering/Resolving]
  - Paranoia [Recovering/Resolving]
  - Constipation [Unknown]
  - Weight decreased [Unknown]
  - Decreased appetite [Unknown]
  - Stressed eating [Unknown]
